FAERS Safety Report 6978278-X (Version None)
Quarter: 2010Q3

REPORT INFORMATION
  Report Type: 
  Country: None (occurrence: None)
  Receive Date: 20100913
  Receipt Date: 20100903
  Transmission Date: 20110219
  Serious: Yes (Other)
  Sender: FDA-Public Use
  Company Number: US-JNJFOC-20100902634

PATIENT
  Age: 21 Year
  Sex: Female
  Weight: 49.9 kg

DRUGS (4)
  1. ORTHO TRI-CYCLEN LO [Suspect]
     Indication: OVARIAN CYST
     Route: 048
  2. ORAL CONTRACEPTIVE NOS [Suspect]
     Indication: OVARIAN CYST
     Route: 048
  3. PROGESTERONE [Suspect]
     Indication: PROGESTERONE DECREASED
     Route: 048
  4. UNKNOWN MEDICATION [Concomitant]
     Indication: ADRENAL DISORDER
     Route: 048

REACTIONS (3)
  - CONVULSION [None]
  - FEELING ABNORMAL [None]
  - OFF LABEL USE [None]
